FAERS Safety Report 7887864-4 (Version None)
Quarter: 2011Q4

REPORT INFORMATION
  Report Type: 
  Country: None (occurrence: None)
  Receive Date: 20111103
  Receipt Date: 20111031
  Transmission Date: 20120403
  Serious: Yes (Death)
  Sender: FDA-Public Use
  Company Number: GB-JNJFOC-20111013360

PATIENT
  Age: 25 Year
  Sex: Female

DRUGS (4)
  1. ANTITUSSIVE [Suspect]
     Indication: NASOPHARYNGITIS
     Route: 065
  2. ACETAMINOPHEN [Suspect]
     Route: 065
  3. ACETAMINOPHEN [Suspect]
     Indication: NASOPHARYNGITIS
     Route: 065
  4. LEMSIP ORIGINAL [Suspect]
     Indication: NASOPHARYNGITIS
     Route: 065

REACTIONS (3)
  - HEPATIC FAILURE [None]
  - OVERDOSE [None]
  - DRUG ADMINISTRATION ERROR [None]
